FAERS Safety Report 24168603 (Version 1)
Quarter: 2024Q3

REPORT INFORMATION
  Report Type: Spontaneous
  Country: CN (occurrence: None)
  Receive Date: 20240802
  Receipt Date: 20240802
  Transmission Date: 20241017
  Serious: Yes (Life-Threatening)
  Sender: ASTRAZENECA
  Company Number: 2024A166926

PATIENT
  Sex: Female

DRUGS (1)
  1. TAGRISSO [Suspect]
     Active Substance: OSIMERTINIB
     Route: 048

REACTIONS (5)
  - Gastrointestinal disorder [Unknown]
  - Pain in extremity [Unknown]
  - Vomiting [Unknown]
  - Dehydration [Unknown]
  - Frequent bowel movements [Unknown]
